FAERS Safety Report 4365217-3 (Version None)
Quarter: 2004Q2

REPORT INFORMATION
  Report Type: 
  Country: None (occurrence: None)
  Receive Date: 20040525
  Receipt Date: 20040318
  Transmission Date: 20050107
  Serious: No
  Sender: FDA-Public Use
  Company Number: PHEH2004US03300

PATIENT
  Age: 27 Year
  Sex: Female
  Weight: 68 kg

DRUGS (4)
  1. ZELNORM [Suspect]
     Indication: IRRITABLE BOWEL SYNDROME
     Dosage: 6 MG, BID, ORAL
     Route: 048
     Dates: start: 20040311, end: 20040315
  2. EFFEXOR XR [Concomitant]
  3. MIRCETTE (DESOGESTREL) [Concomitant]
  4. ZYRTEC [Concomitant]

REACTIONS (1)
  - RASH PRURITIC [None]
